FAERS Safety Report 7644453-4 (Version None)
Quarter: 2011Q3

REPORT INFORMATION
  Report Type: 
  Country: None (occurrence: None)
  Receive Date: 20110729
  Receipt Date: 20110722
  Transmission Date: 20111222
  Serious: Yes (Other)
  Sender: FDA-Public Use
  Company Number: FR-ROCHE-784524

PATIENT
  Sex: Female
  Weight: 63 kg

DRUGS (1)
  1. BONIVA [Suspect]
     Indication: OSTEOPOROSIS
     Dosage: DOSE: 1 TABLET
     Route: 048
     Dates: start: 20070701

REACTIONS (4)
  - GINGIVAL PAIN [None]
  - PAIN IN JAW [None]
  - GINGIVITIS [None]
  - GINGIVAL RECESSION [None]
